FAERS Safety Report 6760350-0 (Version None)
Quarter: 2010Q2

REPORT INFORMATION
  Report Type: 
  Country: None (occurrence: None)
  Receive Date: 20100608
  Receipt Date: 20100603
  Transmission Date: 20101027
  Serious: Yes (Other)
  Sender: FDA-Public Use
  Company Number: KR-JNJFOC-20100601273

PATIENT
  Age: 4 Decade
  Sex: Male

DRUGS (1)
  1. RISPERDAL CONSTA [Suspect]
     Indication: DRUG USE FOR UNKNOWN INDICATION
     Route: 030

REACTIONS (6)
  - BLOOD TESTOSTERONE DECREASED [None]
  - CONFUSIONAL STATE [None]
  - EJACULATION FAILURE [None]
  - GYNAECOMASTIA [None]
  - SEMEN VOLUME DECREASED [None]
  - WEIGHT INCREASED [None]
